FAERS Safety Report 6272296-5 (Version None)
Quarter: 2009Q3

REPORT INFORMATION
  Report Type: 
  Country: None (occurrence: None)
  Receive Date: 20090717
  Receipt Date: 20090715
  Transmission Date: 20100115
  Serious: Yes (Life-Threatening)
  Sender: FDA-Public Use
  Company Number: JP-EISAI INC.-E2020-04857-CLI-JP

PATIENT
  Sex: Female
  Weight: 42 kg

DRUGS (5)
  1. ARICEPT [Suspect]
     Indication: DEMENTIA WITH LEWY BODIES
     Route: 048
     Dates: start: 20090428, end: 20090511
  2. ARICEPT [Suspect]
     Route: 048
     Dates: start: 20090512, end: 20090608
  3. ARICEPT [Suspect]
     Route: 048
     Dates: start: 20090609, end: 20090704
  4. MENESIT [Suspect]
     Indication: DEMENTIA WITH LEWY BODIES
     Route: 048
     Dates: start: 20080930
  5. CETAPRIL [Suspect]
     Route: 048
     Dates: start: 20090427

REACTIONS (1)
  - RUPTURED CEREBRAL ANEURYSM [None]
